FAERS Safety Report 13958639 (Version 2)
Quarter: 2017Q4

REPORT INFORMATION
  Report Type: Spontaneous
  Country: JP (occurrence: JP)
  Receive Date: 20170911
  Receipt Date: 20171109
  Transmission Date: 20180320
  Serious: Yes (Death, Other)
  Sender: FDA-Public Use
  Company Number: JP-CELGENEUS-JPN-20170901453

PATIENT
  Age: 74 Year
  Sex: Male

DRUGS (4)
  1. VIDAZA [Suspect]
     Active Substance: AZACITIDINE
     Indication: MYELODYSPLASTIC SYNDROME
     Route: 058
     Dates: start: 201603
  2. VIDAZA [Suspect]
     Active Substance: AZACITIDINE
     Route: 058
  3. VIDAZA [Suspect]
     Active Substance: AZACITIDINE
     Route: 058
  4. VIDAZA [Suspect]
     Active Substance: AZACITIDINE
     Route: 058
     Dates: start: 201606

REACTIONS (2)
  - Septic shock [Fatal]
  - Pneumonia [Unknown]

NARRATIVE: CASE EVENT DATE: 201606
